FAERS Safety Report 5201273-8 (Version None)
Quarter: 2007Q1

REPORT INFORMATION
  Report Type: 
  Country: None (occurrence: None)
  Receive Date: 20070103
  Receipt Date: 20061218
  Transmission Date: 20070707
  Serious: Yes (Disabling)
  Sender: FDA-Public Use
  Company Number: 234321

PATIENT
  Age: 49 Year
  Sex: Female
  Weight: 95 kg

DRUGS (6)
  1. HERCEPTIN [Suspect]
     Indication: DRUG USE FOR UNKNOWN INDICATION
     Dosage: INTRAVENOUS
     Route: 042
     Dates: start: 20060912
  2. ARIMIDEX [Concomitant]
  3. GLUCOSAMINE (GLUCOSAMINE) [Concomitant]
  4. CALTRATE (CALCIUM CARBONATE) [Concomitant]
  5. CITALOPRAM HYDROBROMIDE [Concomitant]
  6. NEXIUM [Concomitant]

REACTIONS (2)
  - PAIN OF SKIN [None]
  - SKIN FISSURES [None]
